FAERS Safety Report 24603900 (Version 2)
Quarter: 2024Q4

REPORT INFORMATION
  Report Type: Spontaneous
  Country: BR (occurrence: BR)
  Receive Date: 20241111
  Receipt Date: 20241119
  Transmission Date: 20250114
  Serious: No
  Sender: BAXTER
  Company Number: BR-BAXTER-2024BAX026854

PATIENT
  Age: 65 Year
  Sex: Female
  Weight: 89 kg

DRUGS (2)
  1. IRON [Suspect]
     Active Substance: IRON
     Indication: Mineral supplementation
     Dosage: 2 AMPOULES, ONCE A WEEK, DILUTED IN 250 ML OF SALINE SOLUTION IN ONE HOUR
     Route: 042
     Dates: start: 20240919, end: 20241024
  2. SODIUM CHLORIDE [Suspect]
     Active Substance: SODIUM CHLORIDE
     Indication: Medication dilution
     Dosage: 2 AMPOULES OF SUCROFER, ONCE A WEEK, DILUTED IN 250 ML OF SALINE SOLUTION IN ONE HOUR
     Route: 042
     Dates: start: 20240919, end: 20241024

REACTIONS (4)
  - Abdominal pain upper [Recovered/Resolved]
  - Headache [Recovered/Resolved]
  - Nausea [Recovered/Resolved]
  - Abdominal pain upper [Recovered/Resolved]

NARRATIVE: CASE EVENT DATE: 20240919
